FAERS Safety Report 23159808 (Version 1)
Quarter: 2023Q4

REPORT INFORMATION
  Report Type: Spontaneous
  Country: AU (occurrence: AU)
  Receive Date: 20231108
  Receipt Date: 20231108
  Transmission Date: 20240110
  Serious: Yes (Other)
  Sender: FDA-Public Use
  Company Number: AU-002147023-NVSC2023AU233937

PATIENT

DRUGS (5)
  1. RUXOLITINIB [Suspect]
     Active Substance: RUXOLITINIB
     Indication: Myelofibrosis
     Dosage: 20 MG, BID
     Route: 048
     Dates: start: 20210331, end: 20210913
  2. FEDRATINIB [Suspect]
     Active Substance: FEDRATINIB
     Indication: Myelofibrosis
     Dosage: 1 DOSAGE FORM, QD
     Route: 048
     Dates: start: 20211001, end: 20211014
  3. FEDRATINIB [Suspect]
     Active Substance: FEDRATINIB
     Dosage: 200 MG
     Route: 065
     Dates: start: 20211018, end: 20211020
  4. FEDRATINIB [Suspect]
     Active Substance: FEDRATINIB
     Dosage: 300 MG
     Route: 065
     Dates: start: 20211018
  5. FEDRATINIB [Suspect]
     Active Substance: FEDRATINIB
     Dosage: 400 MG
     Route: 065
     Dates: start: 20211021, end: 20220623

REACTIONS (4)
  - Squamous cell carcinoma of skin [Recovered/Resolved]
  - Second primary malignancy [Recovered/Resolved]
  - Squamous cell carcinoma of skin [Recovered/Resolved]
  - Squamous cell carcinoma of skin [Recovered/Resolved]

NARRATIVE: CASE EVENT DATE: 20210608
